FAERS Safety Report 11872029 (Version 1)
Quarter: 2015Q4

REPORT INFORMATION
  Report Type: Spontaneous
  Country: PL (occurrence: PL)
  Receive Date: 20151228
  Receipt Date: 20151228
  Transmission Date: 20160305
  Serious: Yes (Other)
  Sender: FDA-Public Use
  Company Number: PL-BAXTER-2015BAX068968

PATIENT
  Age: 57 Year
  Sex: Female

DRUGS (5)
  1. RITUXIMAB [Suspect]
     Active Substance: RITUXIMAB
     Indication: GRANULOMATOSIS WITH POLYANGIITIS
     Route: 042
  2. SULFAMETHOXAZOLE AND TRIMETHOPRIM [Concomitant]
     Active Substance: SULFAMETHOXAZOLE\TRIMETHOPRIM
     Indication: ANTIFUNGAL PROPHYLAXIS
     Dosage: 160 MG/800 MG
     Route: 065
  3. ENDOXAN [Suspect]
     Active Substance: CYCLOPHOSPHAMIDE
     Dosage: FOURTH PULSE OF CF 1 GRAM, THE TOTAL DOSE ADMINISTERED 4 GRAMS
     Route: 042
  4. ENDOXAN [Suspect]
     Active Substance: CYCLOPHOSPHAMIDE
     Indication: GRANULOMATOSIS WITH POLYANGIITIS
     Route: 042
  5. PREDNISONE. [Suspect]
     Active Substance: PREDNISONE
     Indication: GRANULOMATOSIS WITH POLYANGIITIS
     Route: 048

REACTIONS (15)
  - Tracheal stenosis [Unknown]
  - Staphylococcal infection [Unknown]
  - Dyspnoea [Recovering/Resolving]
  - Malaise [Unknown]
  - Nausea [Unknown]
  - General physical health deterioration [Recovering/Resolving]
  - Asthenia [Unknown]
  - Deafness unilateral [Unknown]
  - Acinetobacter infection [Unknown]
  - Lower respiratory tract infection [Unknown]
  - Cough [Recovering/Resolving]
  - Candida infection [Unknown]
  - Sputum retention [Recovering/Resolving]
  - No therapeutic response [Recovering/Resolving]
  - Streptococcal infection [Unknown]
